FAERS Safety Report 9479959 (Version 1)
Quarter: 2013Q3

REPORT INFORMATION
  Report Type: Spontaneous
  Country: US (occurrence: US)
  Receive Date: 20130828
  Receipt Date: 20130828
  Transmission Date: 20140515
  Serious: Yes (Hospitalization, Other)
  Sender: FDA-Public Use
  Company Number: US-AMGEN-KDL054913

PATIENT
  Age: 70 Year
  Sex: Female

DRUGS (3)
  1. ENBREL [Suspect]
     Indication: PSORIATIC ARTHROPATHY
     Dosage: 25 MG, 2 TIMES/WK
     Route: 058
     Dates: start: 19990101, end: 20030331
  2. CELECOXIB [Concomitant]
  3. PREDNISONE [Concomitant]

REACTIONS (6)
  - Syncope [Unknown]
  - Blood test abnormal [Unknown]
  - Eye disorder [Unknown]
  - Ear disorder [Unknown]
  - Jaw disorder [Unknown]
  - Sinusitis [Unknown]
